FAERS Safety Report 10646202 (Version 1)
Quarter: 2014Q4

REPORT INFORMATION
  Report Type: Spontaneous
  Country: US (occurrence: None)
  Receive Date: 20141205
  Receipt Date: 20141205
  Transmission Date: 20150529
  Serious: No
  Sender: FDA-Public Use
  Company Number: USA-2014102415

PATIENT
  Age: 69 Year
  Sex: Male
  Weight: 72.58 kg

DRUGS (4)
  1. TESTIM [Concomitant]
     Active Substance: TESTOSTERONE
  2. POMALYST [Suspect]
     Active Substance: POMALIDOMIDE
     Indication: PLASMA CELL MYELOMA
     Dosage: 4 MG, 21 IN 21 D, PO
     Route: 048
     Dates: start: 20140911
  3. FLOMAX (MONIFLUMATE) [Concomitant]
  4. WELCHOL (COLESEVELAM HYDROCHLORIDE) (625 MILLIGRAM, TABLET) (COLESEVELAM HYDROCHLORIDE) [Concomitant]
     Active Substance: COLESEVELAM HYDROCHLORIDE

REACTIONS (2)
  - Blood iron decreased [None]
  - Prostate infection [None]

NARRATIVE: CASE EVENT DATE: 2014
